FAERS Safety Report 14014509 (Version 1)
Quarter: 2017Q3

REPORT INFORMATION
  Report Type: Spontaneous
  Country: FR (occurrence: FR)
  Receive Date: 20170927
  Receipt Date: 20170927
  Transmission Date: 20171128
  Serious: Yes (Other)
  Sender: FDA-Public Use
  Company Number: FR-ZYDUS-016233

PATIENT
  Age: 23 Year
  Sex: Male

DRUGS (4)
  1. LEVODOPA [Suspect]
     Active Substance: LEVODOPA
     Indication: PARKINSON^S DISEASE
     Route: 065
  2. SERTRALINE [Concomitant]
     Active Substance: SERTRALINE HYDROCHLORIDE
     Indication: ANXIETY
     Route: 065
  3. PRAMIPEXOLE/PRAMIPEXOLE DIHYDROCHLORIDE [Suspect]
     Active Substance: PRAMIPEXOLE DIHYDROCHLORIDE
     Indication: PARKINSON^S DISEASE
     Dosage: EXTENDED RELEASE
     Route: 065
  4. SERTRALINE [Concomitant]
     Active Substance: SERTRALINE HYDROCHLORIDE
     Indication: MAJOR DEPRESSION
     Route: 065

REACTIONS (10)
  - Dopamine dysregulation syndrome [Unknown]
  - Hallucination, auditory [Unknown]
  - Hypersexuality [Unknown]
  - Impulsive behaviour [Unknown]
  - Psychotic disorder [Recovering/Resolving]
  - Dyskinesia [Unknown]
  - Persecutory delusion [Unknown]
  - Binge eating [Unknown]
  - Obsessive-compulsive disorder [Unknown]
  - Hallucination, visual [Unknown]
